FAERS Safety Report 18328934 (Version 1)
Quarter: 2020Q3

REPORT INFORMATION
  Report Type: Spontaneous
  Country: GB (occurrence: GB)
  Receive Date: 20200930
  Receipt Date: 20200930
  Transmission Date: 20201103
  Serious: Yes (Life-Threatening, Hospitalization, Other)
  Sender: FDA-Public Use
  Company Number: GB-EMCURE PHARMACEUTICALS LTD-2017-EPL-0126

PATIENT
  Age: 23 Year
  Sex: Male

DRUGS (7)
  1. LEVOTHYROXINE. [Suspect]
     Active Substance: LEVOTHYROXINE
     Dosage: 225 MICROGRAM, DAILY
  2. METFORMIN [Suspect]
     Active Substance: METFORMIN HYDROCHLORIDE
     Dosage: 50?60 GRAM
  3. TELMISARTAN. [Suspect]
     Active Substance: TELMISARTAN
     Dosage: 20 MILLIGRAM, DAILY
  4. METFORMIN [Suspect]
     Active Substance: METFORMIN HYDROCHLORIDE
     Dosage: 500 MILLIGRAM,DAILY
     Route: 048
  5. LEVOTHYROXINE. [Suspect]
     Active Substance: LEVOTHYROXINE
     Dosage: UNCLEAR AMOUNT
  6. HYDROCHLOROTHIAZIDE. [Suspect]
     Active Substance: HYDROCHLOROTHIAZIDE
     Dosage: 6.25 MILLIGRAM, DAILY
  7. AMLODIPINE [Concomitant]
     Active Substance: AMLODIPINE BESYLATE
     Dosage: 2.5 MILLIGRAM, DAILY

REACTIONS (10)
  - Acute kidney injury [Recovered/Resolved]
  - Lactic acidosis [Recovered/Resolved]
  - Shock [Unknown]
  - Intentional overdose [Recovered/Resolved]
  - Coagulopathy [Recovered/Resolved]
  - Hepatic function abnormal [Recovered/Resolved]
  - Multiple organ dysfunction syndrome [Recovered/Resolved]
  - Electrocardiogram QT prolonged [Recovered/Resolved]
  - Condition aggravated [Recovered/Resolved]
  - Haemodynamic instability [Recovered/Resolved]
